FAERS Safety Report 5129959-4 (Version None)
Quarter: 2006Q4

REPORT INFORMATION
  Report Type: 
  Country: None (occurrence: None)
  Receive Date: 20061018
  Receipt Date: 20060802
  Transmission Date: 20070319
  Serious: Yes (Other)
  Sender: FDA-Public Use
  Company Number: BE-BOEHRINGER INGELHEIM PHARMACEUTICALS, INC.-2006-DE-04172BY

PATIENT
  Age: 61 Year
  Sex: Female

DRUGS (10)
  1. KINZALMONO [Suspect]
     Indication: HYPERTENSION
     Route: 048
     Dates: start: 20050606
  2. KINZALMONO [Suspect]
     Route: 048
     Dates: start: 20050914, end: 20060901
  3. LOORTAN [Concomitant]
     Indication: HYPERTENSION
     Route: 048
     Dates: start: 20060901
  4. LOORTAN [Concomitant]
     Route: 048
     Dates: start: 20060217
  5. LASIX [Concomitant]
     Indication: FLUID RETENTION
     Route: 048
     Dates: start: 20060217
  6. SIMVASTATINE BEXAL [Concomitant]
     Indication: HYPERCHOLESTEROLAEMIA
     Route: 048
     Dates: start: 20050519
  7. MERCK-CELIPROLOL [Concomitant]
     Indication: HYPERTENSION
     Route: 048
     Dates: start: 20041015
  8. ALLOPURINOL [Concomitant]
     Indication: HYPERURICAEMIA
     Route: 048
     Dates: start: 20021220
  9. ALLOPURINOL [Concomitant]
     Indication: GOUT
  10. ASAFLOW [Concomitant]
     Indication: TRANSIENT ISCHAEMIC ATTACK
     Route: 048
     Dates: start: 19980313

REACTIONS (3)
  - MUCOSAL EROSION [None]
  - NASAL DRYNESS [None]
  - SCAB [None]
